FAERS Safety Report 6258504-5 (Version None)
Quarter: 2009Q3

REPORT INFORMATION
  Report Type: 
  Country: None (occurrence: None)
  Receive Date: 20090707
  Receipt Date: 20090629
  Transmission Date: 20100115
  Serious: Yes (Hospitalization)
  Sender: FDA-Public Use
  Company Number: IT-AVENTIS-200915653GDDC

PATIENT
  Age: 64 Year
  Sex: Female
  Weight: 115 kg

DRUGS (7)
  1. CODE UNBROKEN [Suspect]
     Indication: RHEUMATOID ARTHRITIS
     Dosage: DOSE: 20 MG OR 100 MG
     Route: 048
     Dates: start: 20090416, end: 20090418
  2. LEFLUNOMIDE [Suspect]
     Indication: RHEUMATOID ARTHRITIS
     Route: 048
     Dates: start: 20090419
  3. LOSARTAN POTASSIUM AND HYDROCHLOROTHIAZIDE [Concomitant]
     Indication: HYPERTENSION
     Dosage: DOSE: 25MG + 6.25MG
     Route: 048
     Dates: start: 19960101
  4. ESOMEPRAZOLE MAGNESIUM [Concomitant]
     Route: 048
     Dates: start: 20081209
  5. MANIDIPINE [Concomitant]
     Indication: HYPERTENSION
     Route: 048
     Dates: start: 19960101
  6. INDOMETHACIN [Concomitant]
  7. ACETAMINOPHENE [Concomitant]

REACTIONS (2)
  - CHEST PAIN [None]
  - HEPATITIS ACUTE [None]
